FAERS Safety Report 17912807 (Version 3)
Quarter: 2022Q2

REPORT INFORMATION
  Report Type: Spontaneous
  Country: US (occurrence: US)
  Receive Date: 20200618
  Receipt Date: 20220425
  Transmission Date: 20220721
  Serious: No
  Sender: FDA-Public Use
  Company Number: US-PFIZER INC-2019300773

PATIENT
  Age: 76 Year
  Sex: Female
  Weight: 77.11 kg

DRUGS (5)
  1. LYRICA [Suspect]
     Active Substance: PREGABALIN
     Indication: Inflammation
     Dosage: 100 MG, AS NEEDED (1 CAPSULE BY MOUTH THREE TIMES DAILY, AS NEEDED)
     Route: 048
     Dates: start: 2014
  2. LYRICA [Suspect]
     Active Substance: PREGABALIN
     Indication: Toxic neuropathy
     Dosage: 100 MG, 3X/DAY (ONE CAPSULE THREE TIMES A DAY BY MOUTH; MORNING, NOON, AND BEFORE BED)
     Route: 048
  3. LYRICA [Suspect]
     Active Substance: PREGABALIN
     Indication: Polyneuropathy
  4. LYRICA [Suspect]
     Active Substance: PREGABALIN
     Indication: Autonomic neuropathy
  5. LYRICA [Suspect]
     Active Substance: PREGABALIN
     Indication: Burning sensation

REACTIONS (4)
  - Product dose omission in error [Unknown]
  - Weight increased [Unknown]
  - Memory impairment [Unknown]
  - Skin disorder [Unknown]

NARRATIVE: CASE EVENT DATE: 20140101
